FAERS Safety Report 22208751 (Version 1)
Quarter: 2023Q2

REPORT INFORMATION
  Report Type: Report from Study
  Country: US (occurrence: US)
  Receive Date: 20230413
  Receipt Date: 20230413
  Transmission Date: 20230722
  Serious: Yes (Other)
  Sender: FDA-Public Use
  Company Number: US-ABBVIE-4726150

PATIENT
  Sex: Female

DRUGS (1)
  1. HUMIRA [Suspect]
     Active Substance: ADALIMUMAB
     Indication: Colitis ulcerative
     Dosage: CITRATE FREE?FORM STRENGTH 40 MILLIGRAMS
     Route: 058
     Dates: start: 20191020

REACTIONS (4)
  - Retinal detachment [Recovering/Resolving]
  - Eye pruritus [Unknown]
  - Inflammation [Unknown]
  - Vision blurred [Recovering/Resolving]
